FAERS Safety Report 9766353 (Version 1)
Quarter: 2013Q4

REPORT INFORMATION
  Report Type: Spontaneous
  Country: US (occurrence: None)
  Receive Date: 20131216
  Receipt Date: 20131216
  Transmission Date: 20140711
  Serious: Yes (Other)
  Sender: FDA-Public Use
  Company Number: None

PATIENT
  Sex: Female

DRUGS (1)
  1. ACTHAR GEL [Suspect]
     Indication: NEPHRITIS
     Dosage: 8 UNITS TWICE WEEKLY, IM
     Dates: start: 201303, end: 201312

REACTIONS (3)
  - Mood altered [None]
  - Weight increased [None]
  - Insomnia [None]
